FAERS Safety Report 5108290-7 (Version None)
Quarter: 2006Q3

REPORT INFORMATION
  Report Type: 
  Country: None (occurrence: None)
  Receive Date: 20060914
  Receipt Date: 20060914
  Transmission Date: 20061208
  Serious: Yes (Other)
  Sender: FDA-Public Use
  Company Number: None

PATIENT
  Sex: Male
  Weight: 92.5338 kg

DRUGS (10)
  1. LISINOPRIL [Suspect]
     Indication: HYPERTENSION
     Dosage: 1/2 5 MG TAB QD
     Dates: start: 20020813, end: 20060320
  2. ACCUCHECK [Concomitant]
  3. ALBUTEROL [Concomitant]
  4. PERCOCET [Concomitant]
  5. FLUNISOLIDE NASAL [Concomitant]
  6. GLIPIZIDE [Concomitant]
  7. GUAIFENESIN [Concomitant]
  8. KERLIX [Concomitant]
  9. LORATADINE [Concomitant]
  10. PIROXOCAM [Concomitant]

REACTIONS (1)
  - COUGH [None]
